FAERS Safety Report 10155767 (Version 1)
Quarter: 2014Q2

REPORT INFORMATION
  Report Type: Spontaneous
  Country: CL (occurrence: CL)
  Receive Date: 20140506
  Receipt Date: 20140506
  Transmission Date: 20141212
  Serious: Yes (Other)
  Sender: FDA-Public Use
  Company Number: PHHY2014CL054098

PATIENT
  Age: 48 Year
  Sex: Female

DRUGS (2)
  1. GILENYA [Suspect]
     Indication: RELAPSING-REMITTING MULTIPLE SCLEROSIS
     Dosage: 0.5 MG, QD
     Route: 048
     Dates: start: 20111215, end: 20131212
  2. TEGRETOL [Concomitant]
     Indication: TRIGEMINAL NERVE DISORDER

REACTIONS (2)
  - Anaemia [Unknown]
  - Liver function test abnormal [Unknown]
